FAERS Safety Report 7296109-8 (Version None)
Quarter: 2011Q1

REPORT INFORMATION
  Report Type: 
  Country: None (occurrence: None)
  Receive Date: 20110216
  Receipt Date: 20110207
  Transmission Date: 20110831
  Serious: Yes (Hospitalization)
  Sender: FDA-Public Use
  Company Number: US-ROCHE-755549

PATIENT
  Sex: Female
  Weight: 65 kg

DRUGS (9)
  1. BEVACIZUMAB [Suspect]
     Route: 042
     Dates: start: 20100928
  2. BEVACIZUMAB [Suspect]
     Route: 042
     Dates: start: 20101123
  3. BEVACIZUMAB [Suspect]
     Route: 042
     Dates: start: 20110104
  4. BEVACIZUMAB [Suspect]
     Route: 042
     Dates: start: 20100914
  5. BEVACIZUMAB [Suspect]
     Route: 042
     Dates: start: 20101026
  6. BEVACIZUMAB [Suspect]
     Route: 042
     Dates: start: 20101221
  7. BEVACIZUMAB [Suspect]
     Route: 042
     Dates: start: 20101012
  8. BEVACIZUMAB [Suspect]
     Indication: BREAST CANCER
     Dosage: (FREQUENCY:  EVERY OTHER WEEK)
     Route: 042
     Dates: start: 20100831
  9. BEVACIZUMAB [Suspect]
     Route: 042
     Dates: start: 20101109

REACTIONS (2)
  - PYREXIA [None]
  - MALIGNANT PLEURAL EFFUSION [None]
